FAERS Safety Report 5735959-3 (Version None)
Quarter: 2008Q2

REPORT INFORMATION
  Report Type: 
  Country: None (occurrence: None)
  Receive Date: 20080513
  Receipt Date: 20080506
  Transmission Date: 20081010
  Serious: Yes (Death)
  Sender: FDA-Public Use
  Company Number: CA-TYCO HEALTHCARE/MALLINCKRODT-T200800645

PATIENT

DRUGS (3)
  1. OCTREOSCAN [Suspect]
     Indication: SOMATOSTATIN RECEPTOR SCAN
     Dosage: UNK, SINGLE
     Dates: start: 20080403, end: 20080403
  2. VANCASTIN [Concomitant]
     Indication: CHEMOTHERAPY
     Route: 042
     Dates: end: 20080404
  3. CYCLOPHOSPHAMIDE [Concomitant]
     Indication: CHEMOTHERAPY
     Route: 042
     Dates: end: 20080404

REACTIONS (1)
  - METASTATIC NEOPLASM [None]
